FAERS Safety Report 24570675 (Version 1)
Quarter: 2024Q4

REPORT INFORMATION
  Report Type: Other
  Country: GB (occurrence: GB)
  Receive Date: 20241031
  Receipt Date: 20241031
  Transmission Date: 20250115
  Serious: Yes (Hospitalization, Other)
  Sender: STRIDES
  Company Number: None

PATIENT
  Age: 55 Year
  Sex: Male
  Weight: 79 kg

DRUGS (9)
  1. COLCHICINE [Suspect]
     Active Substance: COLCHICINE
     Indication: Product used for unknown indication
     Dosage: 500 MICROGRAM, EVERY 12 HRS (ONE TABLET TWICE A DAY : WHILE WEANING ONTO ALL...) (TABLET)
     Route: 065
     Dates: start: 20241008
  2. BETAMETHASONE VALERATE [Concomitant]
     Active Substance: BETAMETHASONE VALERATE
     Indication: Ill-defined disorder
     Dosage: UNK (MODERATE POTENCY STEROID CREAM -  APPLY TWICE A...)
     Route: 065
     Dates: start: 20240724, end: 20240821
  3. MICONAZOLE [Concomitant]
     Active Substance: MICONAZOLE
     Indication: Ill-defined disorder
     Dosage: UNK, BID (APPLY TWICE A DAY (ANTI-FUNGAL))
     Route: 065
     Dates: start: 20240917, end: 20241001
  4. OMEPRAZOLE [Concomitant]
     Active Substance: OMEPRAZOLE
     Indication: Ill-defined disorder
     Dosage: UNK, QD (ONE CAPSULE DAILY : WHILE TAKING STEROID (TO RE...)
     Route: 065
     Dates: start: 20240917
  5. PREDNISOLONE [Concomitant]
     Active Substance: PREDNISOLONE
     Indication: Ill-defined disorder
     Dosage: UNK, QD (4 TABLET A DAY)
     Route: 065
     Dates: start: 20240917, end: 20240924
  6. MOUNJARO [Concomitant]
     Active Substance: TIRZEPATIDE
     Indication: Ill-defined disorder
     Dosage: UNK
     Route: 065
     Dates: start: 20241008
  7. MELOXICAM [Concomitant]
     Active Substance: MELOXICAM
     Indication: Ill-defined disorder
     Dosage: UNK, QD (ONE TABLET DAILY (ANTI-INFLAMMATORY - PAINKILLER))
     Route: 065
     Dates: start: 20241014
  8. NAPROXEN [Concomitant]
     Active Substance: NAPROXEN
     Indication: Ill-defined disorder
     Dosage: UNK, PRN (ONE TABLET TWICE A DAY IF NEEDED : WITH FOOD FO...)
     Route: 065
     Dates: start: 20230221, end: 20241014
  9. ALLOPURINOL [Concomitant]
     Active Substance: ALLOPURINOL
     Indication: Ill-defined disorder
     Dosage: UNK, QD (TAKE ONE DAILY TO PREVENT GOUT)
     Route: 065
     Dates: start: 20241008

REACTIONS (2)
  - Rectal haemorrhage [Recovered/Resolved]
  - Abdominal pain [Unknown]

NARRATIVE: CASE EVENT DATE: 20241014
